FAERS Safety Report 21275305 (Version 1)
Quarter: 2022Q3

REPORT INFORMATION
  Report Type: Spontaneous
  Country: US (occurrence: None)
  Receive Date: 20220831
  Receipt Date: 20220831
  Transmission Date: 20221027
  Serious: No
  Sender: FDA-Public Use
  Company Number: None

PATIENT
  Age: 57 Year
  Sex: Female
  Weight: 102.15 kg

DRUGS (19)
  1. TYVASO DPI [Suspect]
     Active Substance: TREPROSTINIL
     Dosage: OTHER QUANTITY : 1 INHALATION(S);?FREQUENCY : EVERY 4 HOURS;?
     Route: 055
     Dates: start: 20220826
  2. ATORVASTATIN [Concomitant]
     Active Substance: ATORVASTATIN
  3. WARFARIN [Concomitant]
     Active Substance: WARFARIN
  4. TORSEMIDE [Concomitant]
     Active Substance: TORSEMIDE
  5. TADALAFIL [Concomitant]
     Active Substance: TADALAFIL
  6. DILTIAZEM [Concomitant]
     Active Substance: DILTIAZEM
  7. FERROUS SULFATE [Concomitant]
     Active Substance: FERROUS SULFATE
  8. SPIRONOLACTONE [Concomitant]
     Active Substance: SPIRONOLACTONE
  9. JARDIANCE [Concomitant]
     Active Substance: EMPAGLIFLOZIN
  10. METOPROLOL [Concomitant]
     Active Substance: METOPROLOL
  11. TYVASO DPI [Concomitant]
     Active Substance: TREPROSTINIL
  12. VGO 20 [Concomitant]
  13. HUMALOG [Concomitant]
     Active Substance: INSULIN LISPRO
  14. Humalog flex pen [Concomitant]
  15. Freestyle Libre 2 CGM [Concomitant]
  16. CLARITIN [Concomitant]
     Active Substance: LORATADINE
  17. VITAMIN C [Concomitant]
     Active Substance: ASCORBIC ACID
  18. MAGNESIUM OXIDE [Concomitant]
     Active Substance: MAGNESIUM OXIDE
  19. VITAMIN D3 [Concomitant]
     Active Substance: CHOLECALCIFEROL

REACTIONS (3)
  - Diarrhoea [None]
  - Headache [None]
  - Body temperature decreased [None]

NARRATIVE: CASE EVENT DATE: 20220827
